FAERS Safety Report 9834051 (Version 3)
Quarter: 2014Q1

REPORT INFORMATION
  Report Type: Report from Study
  Country: DE (occurrence: DE)
  Receive Date: 20140122
  Receipt Date: 20140326
  Transmission Date: 20141002
  Serious: Yes (Hospitalization)
  Sender: FDA-Public Use
  Company Number: DE-ROCHE-1336621

PATIENT
  Age: 50 Year
  Sex: Female
  Weight: 47 kg

DRUGS (3)
  1. BEVACIZUMAB [Suspect]
     Indication: OVARIAN CANCER
     Dosage: LAST DOSE PRIOR TO EVENT:03/JAN/2014
     Route: 042
     Dates: start: 20130430, end: 20140116
  2. CARBOPLATIN [Suspect]
     Indication: OVARIAN CANCER
     Dosage: LAST DOSE PRIOR TO EVENT: 06/AUG/2013
     Route: 042
     Dates: start: 20130429, end: 20140116
  3. PACLITAXEL [Suspect]
     Indication: OVARIAN CANCER
     Dosage: LAST DOSE PRIOR TO EVENT:27/AUG/2013
     Route: 042
     Dates: start: 20130429, end: 20140116

REACTIONS (1)
  - Hypokalaemia [Recovered/Resolved]
